FAERS Safety Report 7044801-2 (Version None)
Quarter: 2010Q4

REPORT INFORMATION
  Report Type: 
  Country: None (occurrence: None)
  Receive Date: 20101014
  Receipt Date: 20101001
  Transmission Date: 20110411
  Serious: Yes (Hospitalization)
  Sender: FDA-Public Use
  Company Number: PHHO2010FR14882

PATIENT
  Sex: Male

DRUGS (3)
  1. NEORAL [Suspect]
     Indication: RENAL TRANSPLANT
     Dosage: 225  + 200 MG
     Route: 048
     Dates: start: 20100701, end: 20100725
  2. MYCOPHENOLIC ACID [Suspect]
     Dosage: 720 MG, BID
     Route: 048
     Dates: start: 20100701, end: 20100725
  3. CEPHALOSPORINES [Suspect]

REACTIONS (13)
  - ARTERECTOMY WITH GRAFT REPLACEMENT [None]
  - ARTERITIS INFECTIVE [None]
  - ENTEROCOCCAL INFECTION [None]
  - HAEMATOMA [None]
  - HAEMATOMA EVACUATION [None]
  - NEPHRECTOMY [None]
  - PROTEUS INFECTION [None]
  - PROTEUS TEST POSITIVE [None]
  - PYREXIA [None]
  - RENAL NECROSIS [None]
  - SUTURE RUPTURE [None]
  - TOXIC SKIN ERUPTION [None]
  - URETERECTOMY [None]
